FAERS Safety Report 10188215 (Version 1)
Quarter: 2014Q2

REPORT INFORMATION
  Report Type: Spontaneous
  Country: US (occurrence: None)
  Receive Date: 20140521
  Receipt Date: 20140521
  Transmission Date: 20141212
  Serious: Yes (Death)
  Sender: FDA-Public Use
  Company Number: None

PATIENT
  Age: 63 Year
  Sex: Male
  Weight: 88.45 kg

DRUGS (2)
  1. AZITHROMYCIN [Suspect]
     Indication: COUGH
     Dosage: 6 PILLS 2 THEN ONE DAILY TAKEN BY MOUTH
     Route: 048
     Dates: start: 20140411, end: 20140415
  2. AZITHROMYCIN [Suspect]
     Indication: SINUS DISORDER
     Dosage: 6 PILLS 2 THEN ONE DAILY TAKEN BY MOUTH
     Route: 048
     Dates: start: 20140411, end: 20140415

REACTIONS (5)
  - Pain [None]
  - Pain in extremity [None]
  - Tendonitis [None]
  - Gait disturbance [None]
  - Impaired work ability [None]
